FAERS Safety Report 19841341 (Version 2)
Quarter: 2021Q3

REPORT INFORMATION
  Report Type: Spontaneous
  Country: RU (occurrence: RU)
  Receive Date: 20210916
  Receipt Date: 20210925
  Transmission Date: 20211014
  Serious: Yes (Other)
  Sender: FDA-Public Use
  Company Number: NVSC2021RU207291

PATIENT

DRUGS (1)
  1. VSIQQ [Suspect]
     Active Substance: BROLUCIZUMAB
     Indication: PRODUCT USED FOR UNKNOWN INDICATION
     Dosage: UNK 1 VIAL X 0.23 ML/27.6 MG PER VIAL
     Route: 065

REACTIONS (3)
  - Macular oedema [Unknown]
  - Visual acuity reduced [Unknown]
  - Concomitant disease aggravated [Unknown]
